FAERS Safety Report 4324612-9 (Version None)
Quarter: 2004Q1

REPORT INFORMATION
  Report Type: 
  Country: None (occurrence: None)
  Receive Date: 20040323
  Receipt Date: 20040322
  Transmission Date: 20041129
  Serious: Yes (Death)
  Sender: FDA-Public Use
  Company Number: HQWYE323714JAN04

PATIENT
  Age: 72 Year
  Sex: Female

DRUGS (10)
  1. AMIODARONE HCL [Suspect]
     Indication: ATRIAL FIBRILLATION
     Dosage: SINGLE DOSE OF 300 MG ; INTRAVENOUS; 900 MG 1X PER 24 HR; INTRAVENOUS
     Route: 042
     Dates: start: 20031122, end: 20031122
  2. AMIODARONE HCL [Suspect]
     Indication: ATRIAL FIBRILLATION
     Dosage: SINGLE DOSE OF 300 MG ; INTRAVENOUS; 900 MG 1X PER 24 HR; INTRAVENOUS
     Route: 042
     Dates: start: 20031122, end: 20031123
  3. AMIODARONE HCL [Suspect]
     Indication: ATRIAL FIBRILLATION
     Dosage: 200 MG 3X PER 1 DAY; ORAL
     Route: 048
     Dates: start: 20031123, end: 20031125
  4. FLUDROCORTISONE ACETATE [Concomitant]
  5. ATORVASTATIN [Concomitant]
  6. ASPIRIN [Concomitant]
  7. CORTISONE [Concomitant]
  8. METFORMIN HCL [Concomitant]
  9. TOLBUTAMIDE [Concomitant]
  10. INSULIN [Concomitant]

REACTIONS (10)
  - ALANINE AMINOTRANSFERASE INCREASED [None]
  - BONE MARROW DEPRESSION [None]
  - CARDIAC ARREST [None]
  - HAEMOGLOBIN DECREASED [None]
  - HEPATIC FAILURE [None]
  - METABOLIC ACIDOSIS [None]
  - MULTI-ORGAN FAILURE [None]
  - RENAL FAILURE [None]
  - RENAL FAILURE ACUTE [None]
  - WHITE BLOOD CELL COUNT DECREASED [None]
